FAERS Safety Report 6302684-X (Version None)
Quarter: 2009Q3

REPORT INFORMATION
  Report Type: 
  Country: None (occurrence: None)
  Receive Date: 20090810
  Receipt Date: 20090729
  Transmission Date: 20100115
  Serious: Yes (Other)
  Sender: FDA-Public Use
  Company Number: PHEH2009US08392

PATIENT
  Age: 40 Year
  Sex: Male

DRUGS (3)
  1. ZOMETA [Suspect]
     Indication: MULTIPLE MYELOMA
     Dosage: 4MG EVERY 3-4 WEEKS
     Route: 042
  2. REVLIMID [Concomitant]
  3. DEXAMETHASONE [Concomitant]

REACTIONS (1)
  - OSTEONECROSIS [None]
